FAERS Safety Report 14899177 (Version 1)
Quarter: 2018Q2

REPORT INFORMATION
  Report Type: Spontaneous
  Country: AU (occurrence: AU)
  Receive Date: 20180516
  Receipt Date: 20180516
  Transmission Date: 20180711
  Serious: No
  Sender: FDA-Public Use
  Company Number: AU-SUN PHARMACEUTICAL INDUSTRIES LTD-2017SUN00215

PATIENT
  Age: 77 Year
  Sex: Female

DRUGS (1)
  1. TECHNETIUM TC-99M DISOFENIN KIT [Suspect]
     Active Substance: TECHNETIUM TC-99M DISOFENIN
     Indication: PRODUCT USED FOR UNKNOWN INDICATION
     Dosage: 5.4 MCI, OD
     Route: 042
     Dates: start: 20170519

REACTIONS (1)
  - Radioisotope scan abnormal [Unknown]

NARRATIVE: CASE EVENT DATE: 20170519
